FAERS Safety Report 5647569-7 (Version None)
Quarter: 2008Q1

REPORT INFORMATION
  Report Type: 
  Country: None (occurrence: None)
  Receive Date: 20080131
  Receipt Date: 20071220
  Transmission Date: 20080703
  Serious: No
  Sender: FDA-Public Use
  Company Number: 163-21880-07121229

PATIENT
  Sex: Male

DRUGS (7)
  1. REVLIMID [Suspect]
     Indication: MYELODYSPLASTIC SYNDROME
     Dosage: 5 MG, AS DIRECTED, ORAL; 10 MG, 1 IN 1 D, ORAL
     Route: 048
     Dates: start: 20070710, end: 20070801
  2. REVLIMID [Suspect]
     Indication: MYELODYSPLASTIC SYNDROME
     Dosage: 5 MG, AS DIRECTED, ORAL; 10 MG, 1 IN 1 D, ORAL
     Route: 048
     Dates: start: 20071026
  3. LYRICA [Concomitant]
  4. ASPIRIN [Concomitant]
  5. CALTRATE D [Concomitant]
  6. FERROUS SULFATE TAB [Concomitant]
  7. SYNTROID (LEVOTHYROXINE SODIUM) [Concomitant]

REACTIONS (4)
  - COGNITIVE DISORDER [None]
  - CONDITION AGGRAVATED [None]
  - DYSARTHRIA [None]
  - NEUROPATHY PERIPHERAL [None]
